FAERS Safety Report 25469171 (Version 4)
Quarter: 2025Q4

REPORT INFORMATION
  Report Type: Other
  Country: US (occurrence: US)
  Receive Date: 20250623
  Receipt Date: 20251118
  Transmission Date: 20260118
  Serious: No
  Sender: TRAVERE THERAPEUTICS
  Company Number: US-TRAVERE-2025TVT00762

PATIENT
  Age: 58 Year
  Sex: Female

DRUGS (1)
  1. FILSPARI [Suspect]
     Active Substance: SPARSENTAN
     Indication: IgA nephropathy
     Dosage: LOT NUMBER: 1976072 AND EXPIRY DATE: 31-MAY-2026
     Route: 048
     Dates: start: 20250516

REACTIONS (4)
  - Chest pain [Unknown]
  - Dizziness [Unknown]
  - Hypotension [None]
  - Inflammation [None]

NARRATIVE: CASE EVENT DATE: 20251008
